FAERS Safety Report 21054186 (Version 2)
Quarter: 2022Q3

REPORT INFORMATION
  Report Type: Report from Study
  Country: CA (occurrence: CA)
  Receive Date: 20220707
  Receipt Date: 20220715
  Transmission Date: 20221026
  Serious: Yes (Other)
  Sender: FDA-Public Use
  Company Number: CA-ABBVIE-22K-028-4456967-00

PATIENT
  Sex: Female

DRUGS (1)
  1. HUMIRA [Suspect]
     Active Substance: ADALIMUMAB
     Indication: Colitis ulcerative
     Route: 058
     Dates: start: 20200729

REACTIONS (7)
  - Gastric haemorrhage [Unknown]
  - Treatment noncompliance [Unknown]
  - Gastric disorder [Unknown]
  - Feeding disorder [Unknown]
  - Feeling abnormal [Unknown]
  - Fear [Unknown]
  - Inappropriate schedule of product administration [Unknown]
